FAERS Safety Report 25444605 (Version 1)
Quarter: 2025Q2

REPORT INFORMATION
  Report Type: Spontaneous
  Country: PL (occurrence: PL)
  Receive Date: 20250617
  Receipt Date: 20250617
  Transmission Date: 20250716
  Serious: Yes (Hospitalization, Other)
  Sender: MYLAN
  Company Number: PL-002147023-NVSC2025PL088287

PATIENT
  Age: 59 Year
  Sex: Female

DRUGS (32)
  1. ZOLEDRONIC ACID [Suspect]
     Active Substance: ZOLEDRONIC ACID
     Indication: Breast cancer
  2. ZOLEDRONIC ACID [Suspect]
     Active Substance: ZOLEDRONIC ACID
     Route: 065
  3. ZOLEDRONIC ACID [Suspect]
     Active Substance: ZOLEDRONIC ACID
     Route: 065
  4. ZOLEDRONIC ACID [Suspect]
     Active Substance: ZOLEDRONIC ACID
  5. KISQALI [Suspect]
     Active Substance: RIBOCICLIB SUCCINATE
     Indication: Breast cancer
  6. KISQALI [Suspect]
     Active Substance: RIBOCICLIB SUCCINATE
  7. KISQALI [Suspect]
     Active Substance: RIBOCICLIB SUCCINATE
     Route: 048
  8. KISQALI [Suspect]
     Active Substance: RIBOCICLIB SUCCINATE
     Route: 048
  9. KISQALI [Suspect]
     Active Substance: RIBOCICLIB SUCCINATE
  10. KISQALI [Suspect]
     Active Substance: RIBOCICLIB SUCCINATE
  11. KISQALI [Suspect]
     Active Substance: RIBOCICLIB SUCCINATE
     Route: 048
  12. KISQALI [Suspect]
     Active Substance: RIBOCICLIB SUCCINATE
     Route: 048
  13. TAMOXIFEN [Suspect]
     Active Substance: TAMOXIFEN
     Indication: Breast cancer
  14. TAMOXIFEN [Suspect]
     Active Substance: TAMOXIFEN
     Indication: Hormone therapy
     Route: 065
  15. TAMOXIFEN [Suspect]
     Active Substance: TAMOXIFEN
     Route: 065
  16. TAMOXIFEN [Suspect]
     Active Substance: TAMOXIFEN
  17. LETROZOLE [Suspect]
     Active Substance: LETROZOLE
     Indication: Breast cancer
  18. LETROZOLE [Suspect]
     Active Substance: LETROZOLE
     Route: 065
  19. LETROZOLE [Suspect]
     Active Substance: LETROZOLE
     Route: 065
  20. LETROZOLE [Suspect]
     Active Substance: LETROZOLE
  21. RAMIPRIL [Concomitant]
     Active Substance: RAMIPRIL
     Indication: Hypertension
  22. RAMIPRIL [Concomitant]
     Active Substance: RAMIPRIL
     Route: 065
  23. RAMIPRIL [Concomitant]
     Active Substance: RAMIPRIL
     Route: 065
  24. RAMIPRIL [Concomitant]
     Active Substance: RAMIPRIL
  25. NALOXONE HYDROCHLORIDE\OXYCODONE HYDROCHLORIDE [Concomitant]
     Active Substance: NALOXONE HYDROCHLORIDE\OXYCODONE HYDROCHLORIDE
     Indication: Pain
  26. NALOXONE HYDROCHLORIDE\OXYCODONE HYDROCHLORIDE [Concomitant]
     Active Substance: NALOXONE HYDROCHLORIDE\OXYCODONE HYDROCHLORIDE
     Route: 065
  27. NALOXONE HYDROCHLORIDE\OXYCODONE HYDROCHLORIDE [Concomitant]
     Active Substance: NALOXONE HYDROCHLORIDE\OXYCODONE HYDROCHLORIDE
     Route: 065
  28. NALOXONE HYDROCHLORIDE\OXYCODONE HYDROCHLORIDE [Concomitant]
     Active Substance: NALOXONE HYDROCHLORIDE\OXYCODONE HYDROCHLORIDE
  29. METAMIZOLE MAGNESIUM [Concomitant]
     Active Substance: METAMIZOLE MAGNESIUM
     Indication: Product used for unknown indication
  30. METAMIZOLE MAGNESIUM [Concomitant]
     Active Substance: METAMIZOLE MAGNESIUM
     Route: 065
  31. METAMIZOLE MAGNESIUM [Concomitant]
     Active Substance: METAMIZOLE MAGNESIUM
     Route: 065
  32. METAMIZOLE MAGNESIUM [Concomitant]
     Active Substance: METAMIZOLE MAGNESIUM

REACTIONS (6)
  - Uterine haemorrhage [Unknown]
  - Postmenopausal haemorrhage [Unknown]
  - Breast cancer recurrent [Unknown]
  - Headache [Recovered/Resolved]
  - Nausea [Recovered/Resolved]
  - Vomiting [Recovered/Resolved]

NARRATIVE: CASE EVENT DATE: 20180101
